FAERS Safety Report 7808210 (Version 10)
Quarter: 2014Q2

REPORT INFORMATION
  Report Type: Report from Study
  Country: US (occurrence: US)
  Receive Date: 20110211
  Receipt Date: 20140516
  Transmission Date: 20141212
  Serious: Yes (Hospitalization)
  Sender: FDA-Public Use
  Company Number: US-BIOGENIDEC-2011BI004597

PATIENT
  Age: 34 Year
  Sex: Female

DRUGS (3)
  1. AVONEX [Suspect]
     Indication: MULTIPLE SCLEROSIS
     Route: 030
     Dates: start: 20070201, end: 20110601
  2. AVONEX [Suspect]
     Indication: MULTIPLE SCLEROSIS
     Route: 030
     Dates: start: 20110901, end: 2013
  3. AVONEX [Suspect]
     Indication: MULTIPLE SCLEROSIS
     Route: 030
     Dates: start: 2013

REACTIONS (9)
  - Invasive ductal breast carcinoma [Recovered/Resolved]
  - Memory impairment [Unknown]
  - Fall [Recovered/Resolved]
  - Epistaxis [Recovered/Resolved]
  - Concussion [Recovered/Resolved]
  - Lower extremity mass [Not Recovered/Not Resolved]
  - Contusion [Not Recovered/Not Resolved]
  - Cast application [Recovered/Resolved]
  - Alopecia [Recovered/Resolved]
